FAERS Safety Report 24125806 (Version 1)
Quarter: 2024Q3

REPORT INFORMATION
  Report Type: Spontaneous
  Country: SE (occurrence: SE)
  Receive Date: 20240723
  Receipt Date: 20240723
  Transmission Date: 20241016
  Serious: Yes (Other)
  Sender: UCB
  Company Number: None

PATIENT
  Age: 30 Year
  Sex: Female
  Weight: 63 kg

DRUGS (1)
  1. KEPPRA [Suspect]
     Active Substance: LEVETIRACETAM
     Indication: Epilepsy
     Dosage: 500 MILLIGRAM, 2X/DAY (BID) (2+0+1,5)
     Route: 048
     Dates: start: 2019

REACTIONS (2)
  - Uterine cancer [Not Recovered/Not Resolved]
  - Hysterectomy [Not Recovered/Not Resolved]

NARRATIVE: CASE EVENT DATE: 20220101
